FAERS Safety Report 7102620 (Version 3)
Quarter: 2013Q4

REPORT INFORMATION
  Report Type: Spontaneous
  Country: GB (occurrence: GB)
  Receive Date: 20090901
  Receipt Date: 20131118
  Transmission Date: 20140711
  Serious: Yes (Hospitalization, Other)
  Sender: FDA-Public Use
  Company Number: PHHY2009GB35501

PATIENT
  Age: 41 Year
  Sex: Male

DRUGS (5)
  1. CLOZARIL [Suspect]
     Indication: SCHIZOPHRENIA
     Dosage: UNK
     Dates: start: 20040708, end: 20090813
  2. CLOZARIL [Suspect]
     Dosage: 450 MG
     Dates: start: 20090820
  3. CLOZARIL [Suspect]
     Dosage: UNK
  4. RISPERIDONE [Concomitant]
     Dosage: UNK
     Dates: start: 20090813
  5. LORAZEPAM [Concomitant]
     Dosage: UNK
     Dates: start: 20090813

REACTIONS (4)
  - Sleep apnoea syndrome [Unknown]
  - Myocardial infarction [Unknown]
  - Rash [Unknown]
  - Sedation [Unknown]
